FAERS Safety Report 11506067 (Version 1)
Quarter: 2015Q3

REPORT INFORMATION
  Report Type: Spontaneous
  Country: US (occurrence: US)
  Receive Date: 20150915
  Receipt Date: 20150915
  Transmission Date: 20151125
  Serious: No
  Sender: FDA-Public Use
  Company Number: US-ROCHE-677861

PATIENT
  Age: 37 Year
  Sex: Female

DRUGS (4)
  1. COPEGUS [Suspect]
     Active Substance: RIBAVIRIN
     Indication: HEPATITIS C
     Dosage: DIVIDED DOSES
     Route: 065
  2. TELAPREVIR [Suspect]
     Active Substance: TELAPREVIR
     Indication: HEPATITIS C
     Route: 065
     Dates: start: 20110820, end: 20110827
  3. PEGASYS [Suspect]
     Active Substance: PEGINTERFERON ALFA-2A
     Indication: HEPATITIS C
     Dosage: PRE-FILLED SYRINGE
     Route: 065
     Dates: start: 20091218, end: 20110827
  4. COPEGUS [Suspect]
     Active Substance: RIBAVIRIN
     Route: 065

REACTIONS (13)
  - Cough [Unknown]
  - Burning sensation [Unknown]
  - Bone pain [Unknown]
  - White blood cell count decreased [Unknown]
  - Glossodynia [Unknown]
  - Sputum discoloured [Unknown]
  - Pyrexia [Not Recovered/Not Resolved]
  - Cheilitis [Unknown]
  - Tongue disorder [Not Recovered/Not Resolved]
  - Skin burning sensation [Unknown]
  - Dry mouth [Not Recovered/Not Resolved]
  - Anaemia [Unknown]
  - Insomnia [Unknown]

NARRATIVE: CASE EVENT DATE: 20091222
